FAERS Safety Report 6254025-4 (Version None)
Quarter: 2009Q3

REPORT INFORMATION
  Report Type: 
  Country: None (occurrence: None)
  Receive Date: 20090702
  Receipt Date: 20090626
  Transmission Date: 20100115
  Serious: Yes (Death, Other)
  Sender: FDA-Public Use
  Company Number: CN-ROCHE-640528

PATIENT
  Age: 60 Year
  Sex: Female

DRUGS (1)
  1. XELODA [Suspect]
     Dosage: THE DURATION OF TREATMENT WITH XELODA WAS ONE TO TWO WEEKS.
     Route: 048
     Dates: start: 20071201, end: 20071201

REACTIONS (3)
  - CHEST PAIN [None]
  - HEPATIC FAILURE [None]
  - HEPATIC FUNCTION ABNORMAL [None]
